FAERS Safety Report 22182759 (Version 1)
Quarter: 2023Q2

REPORT INFORMATION
  Report Type: Other
  Country: None (occurrence: PL)
  Receive Date: 20230406
  Receipt Date: 20230406
  Transmission Date: 20230721
  Serious: Yes (Hospitalization)
  Sender: FDA-Public Use
  Company Number: PL-B.Braun Medical Inc.-2140013

PATIENT
  Age: 4 Year
  Sex: Female
  Weight: 14.7 kg

DRUGS (1)
  1. ACETAMINOPHEN [Suspect]
     Active Substance: ACETAMINOPHEN

REACTIONS (2)
  - Accidental overdose [Recovered/Resolved]
  - Dehydration [Recovered/Resolved]
